FAERS Safety Report 19686883 (Version 1)
Quarter: 2021Q3

REPORT INFORMATION
  Report Type: Spontaneous
  Country: US (occurrence: US)
  Receive Date: 20210811
  Receipt Date: 20210811
  Transmission Date: 20211014
  Serious: No
  Sender: FDA-Public Use
  Company Number: US-BIOGEN-2021BI01034633

PATIENT
  Sex: Female

DRUGS (1)
  1. PLEGRIDY [Suspect]
     Active Substance: PEGINTERFERON BETA-1A
     Indication: MULTIPLE SCLEROSIS
     Route: 065
     Dates: start: 20210614

REACTIONS (4)
  - Gingival swelling [Unknown]
  - Drug dose omission by device [Unknown]
  - Drug delivery system malfunction [Unknown]
  - Gingival pain [Unknown]

NARRATIVE: CASE EVENT DATE: 2021
